FAERS Safety Report 24567004 (Version 2)
Quarter: 2025Q2

REPORT INFORMATION
  Report Type: Report from Study
  Country: DE (occurrence: DE)
  Receive Date: 20241030
  Receipt Date: 20250428
  Transmission Date: 20250717
  Serious: Yes (Hospitalization, Other)
  Sender: MYLAN
  Company Number: DE-BRISTOL-MYERS SQUIBB COMPANY-2024-112300

PATIENT
  Age: 71 Year
  Sex: Male

DRUGS (24)
  1. METHOTREXATE [Suspect]
     Active Substance: METHOTREXATE
     Indication: Product used for unknown indication
     Dosage: 15 MILLIGRAM, QW
  2. METHOTREXATE [Suspect]
     Active Substance: METHOTREXATE
     Dosage: 15 MILLIGRAM, QW
     Route: 065
  3. METHOTREXATE [Suspect]
     Active Substance: METHOTREXATE
     Dosage: 15 MILLIGRAM, QW
     Route: 065
  4. METHOTREXATE [Suspect]
     Active Substance: METHOTREXATE
     Dosage: 15 MILLIGRAM, QW
  5. ORENCIA [Suspect]
     Active Substance: ABATACEPT
     Indication: Rheumatic disorder
     Dosage: 125 MILLIGRAM, QW
     Dates: end: 20240307
  6. ORENCIA [Suspect]
     Active Substance: ABATACEPT
     Dosage: 125 MILLIGRAM, QW
     Route: 058
     Dates: end: 20240307
  7. ORENCIA [Suspect]
     Active Substance: ABATACEPT
     Dosage: 125 MILLIGRAM, QW
     Route: 058
     Dates: end: 20240307
  8. ORENCIA [Suspect]
     Active Substance: ABATACEPT
     Dosage: 125 MILLIGRAM, QW
     Dates: end: 20240307
  9. IDACIO [Suspect]
     Active Substance: ADALIMUMAB-AACF
     Indication: Product used for unknown indication
     Dosage: 40 MILLIGRAM, Q2W
     Dates: start: 20240325
  10. IDACIO [Suspect]
     Active Substance: ADALIMUMAB-AACF
     Dosage: 40 MILLIGRAM, Q2W
     Route: 058
     Dates: start: 20240325
  11. IDACIO [Suspect]
     Active Substance: ADALIMUMAB-AACF
     Dosage: 40 MILLIGRAM, Q2W
     Route: 058
     Dates: start: 20240325
  12. IDACIO [Suspect]
     Active Substance: ADALIMUMAB-AACF
     Dosage: 40 MILLIGRAM, Q2W
     Dates: start: 20240325
  13. FILGOTINIB [Suspect]
     Active Substance: FILGOTINIB
     Indication: Product used for unknown indication
  14. FILGOTINIB [Suspect]
     Active Substance: FILGOTINIB
     Route: 065
  15. FILGOTINIB [Suspect]
     Active Substance: FILGOTINIB
     Route: 065
  16. FILGOTINIB [Suspect]
     Active Substance: FILGOTINIB
  17. KEVZARA [Suspect]
     Active Substance: SARILUMAB
     Indication: Product used for unknown indication
  18. KEVZARA [Suspect]
     Active Substance: SARILUMAB
     Route: 065
  19. KEVZARA [Suspect]
     Active Substance: SARILUMAB
     Route: 065
  20. KEVZARA [Suspect]
     Active Substance: SARILUMAB
  21. PREDNISOLONE [Concomitant]
     Active Substance: PREDNISOLONE
     Indication: Product used for unknown indication
  22. PREDNISOLONE [Concomitant]
     Active Substance: PREDNISOLONE
     Route: 065
  23. PREDNISOLONE [Concomitant]
     Active Substance: PREDNISOLONE
     Route: 065
  24. PREDNISOLONE [Concomitant]
     Active Substance: PREDNISOLONE

REACTIONS (2)
  - Rheumatoid arthritis [Recovered/Resolved]
  - Renal cyst [Unknown]
